FAERS Safety Report 15359178 (Version 2)
Quarter: 2019Q3

REPORT INFORMATION
  Report Type: Report from Study
  Country: GB (occurrence: GB)
  Receive Date: 20180907
  Receipt Date: 20190702
  Transmission Date: 20191004
  Serious: Yes (Hospitalization, Other)
  Sender: FDA-Public Use
  Company Number: GB-BRISTOL-MYERS SQUIBB COMPANY-BMS-2018-081544

PATIENT
  Age: 5 Year
  Sex: Female

DRUGS (1)
  1. DASATINIB. [Suspect]
     Active Substance: DASATINIB
     Indication: BRAIN STEM GLIOMA
     Dosage: 1100 MG, UNK
     Route: 048
     Dates: start: 20180531, end: 20180828

REACTIONS (8)
  - Pyrexia [Recovering/Resolving]
  - Constipation [Recovering/Resolving]
  - Hydrocephalus [Unknown]
  - Neck pain [Recovering/Resolving]
  - Hypoalbuminaemia [Recovering/Resolving]
  - Diarrhoea [Recovering/Resolving]
  - Vomiting [Recovering/Resolving]
  - Anaemia [Recovering/Resolving]

NARRATIVE: CASE EVENT DATE: 20180828
